FAERS Safety Report 5253139-5 (Version None)
Quarter: 2007Q1

REPORT INFORMATION
  Report Type: 
  Country: None (occurrence: None)
  Receive Date: 20070301
  Receipt Date: 20070219
  Transmission Date: 20070707
  Serious: Yes (Hospitalization)
  Sender: FDA-Public Use
  Company Number: FR-GLAXOSMITHKLINE-B0459577A

PATIENT
  Age: 90 Year
  Sex: Male

DRUGS (1)
  1. LAMICTAL [Suspect]
     Indication: STATUS EPILEPTICUS
     Dosage: 25MG PER DAY
     Route: 048
     Dates: start: 20070127, end: 20070206

REACTIONS (5)
  - BLOOD CREATININE INCREASED [None]
  - DYSPHAGIA [None]
  - GENERAL PHYSICAL HEALTH DETERIORATION [None]
  - OEDEMA PERIPHERAL [None]
  - TERMINAL STATE [None]
